FAERS Safety Report 6903591-1 (Version None)
Quarter: 2010Q3

REPORT INFORMATION
  Report Type: 
  Country: None (occurrence: None)
  Receive Date: 20100803
  Receipt Date: 20081028
  Transmission Date: 20110219
  Serious: No
  Sender: FDA-Public Use
  Company Number: US-PFIZER INC-2008080352

PATIENT
  Sex: Female
  Weight: 102.06 kg

DRUGS (5)
  1. LYRICA [Suspect]
     Indication: FIBROMYALGIA
     Route: 048
     Dates: start: 20080827
  2. LUNESTA [Concomitant]
  3. TRAMADOL HYDROCHLORIDE [Concomitant]
  4. SKELAXIN [Concomitant]
  5. DICLOFENAC [Concomitant]

REACTIONS (6)
  - ABDOMINAL DISTENSION [None]
  - FIBROMYALGIA [None]
  - HYPERTENSION [None]
  - PANIC REACTION [None]
  - VITAMIN B12 DECREASED [None]
  - WEIGHT INCREASED [None]
